FAERS Safety Report 7352150-8 (Version None)
Quarter: 2011Q1

REPORT INFORMATION
  Report Type: 
  Country: None (occurrence: None)
  Receive Date: 20110315
  Receipt Date: 20110113
  Transmission Date: 20110831
  Serious: Yes (Other)
  Sender: FDA-Public Use
  Company Number: US-BAYER-201039409NA

PATIENT
  Sex: Female
  Weight: 126.98 kg

DRUGS (20)
  1. IBUPROFEN [Concomitant]
     Dosage: 800 MG, UNK
     Route: 065
  2. ZANTAC [Concomitant]
     Dosage: 150 MG, UNK
     Route: 048
  3. LORATADINE [Concomitant]
     Dosage: 10 MG, UNK
     Route: 065
  4. ALBUTEROL [Concomitant]
     Dosage: 90 ?G, UNK
     Route: 065
  5. EFFEXOR XR [Concomitant]
     Dosage: 75 MG, UNK
     Route: 065
  6. BUTALBITAL ACETAMINOPHEN AND CAFFEINE [Concomitant]
     Dosage: 325-40 UNK, UNK
     Route: 065
  7. AZITHROMYCIN [Concomitant]
     Dosage: 250 MG, UNK
     Route: 065
  8. BUPROPION HYDROCHLORIDE [Concomitant]
     Dosage: 150 MG, UNK
     Route: 065
  9. CYCLOBENZAPRINE [Concomitant]
     Dosage: 10 MG, UNK
     Route: 065
  10. BENZONATATE [Concomitant]
     Dosage: 100 MG, UNK
     Route: 065
  11. TRIAMCINOLONE [Concomitant]
  12. YASMIN [Suspect]
     Indication: MENSTRUATION IRREGULAR
  13. TOBRADEX [Concomitant]
     Dosage: UNK UNK, UNK
     Route: 065
  14. METFORMIN [Concomitant]
     Dosage: 500 MG, UNK
     Route: 048
  15. GLYBURIDE [Concomitant]
     Dosage: 5 MG, UNK
     Route: 048
  16. YASMIN [Suspect]
     Indication: ORAL CONTRACEPTION
     Dosage: UNK
     Dates: start: 20070501, end: 20080522
  17. ROXICET [Concomitant]
     Dosage: 5/325
     Route: 065
  18. YAZ [Suspect]
     Indication: MENSTRUATION IRREGULAR
  19. COTRIM [Concomitant]
     Dosage: UNK UNK, UNK
     Route: 065
  20. YAZ [Suspect]
     Indication: ORAL CONTRACEPTION
     Dosage: UNK UNK, QD
     Route: 048
     Dates: start: 20070520, end: 20070501

REACTIONS (7)
  - CHOLECYSTITIS CHRONIC [None]
  - ABDOMINAL DISTENSION [None]
  - ABDOMINAL PAIN [None]
  - DYSPEPSIA [None]
  - BILIARY COLIC [None]
  - FLATULENCE [None]
  - CHOLELITHIASIS [None]
